FAERS Safety Report 6299186-6 (Version None)
Quarter: 2009Q3

REPORT INFORMATION
  Report Type: 
  Country: None (occurrence: None)
  Receive Date: 20090806
  Receipt Date: 20090724
  Transmission Date: 20100115
  Serious: Yes (Other)
  Sender: FDA-Public Use
  Company Number: US-NOVOPROD-289759

PATIENT

DRUGS (2)
  1. NOVOLOG MIX 70/30 [Suspect]
     Indication: TYPE 2 DIABETES MELLITUS
     Dosage: 24 IU, QD
     Route: 058
     Dates: start: 20050101
  2. OXYCONTIN [Concomitant]
     Indication: PAIN MANAGEMENT

REACTIONS (9)
  - BLOOD GLUCOSE INCREASED [None]
  - ERYTHEMA [None]
  - FLUID RETENTION [None]
  - MICTURITION FREQUENCY DECREASED [None]
  - NEPHROLITHIASIS [None]
  - POLLAKIURIA [None]
  - RENAL MASS [None]
  - SKIN EXFOLIATION [None]
  - WALKING DISABILITY [None]
